FAERS Safety Report 4709287-9 (Version None)
Quarter: 2005Q3

REPORT INFORMATION
  Report Type: 
  Country: None (occurrence: None)
  Receive Date: 20050707
  Receipt Date: 20050707
  Transmission Date: 20060218
  Serious: Yes (Life-Threatening)
  Sender: FDA-Public Use
  Company Number: None

PATIENT
  Sex: Male
  Weight: 92.9874 kg

DRUGS (1)
  1. LESCOL XL [Suspect]
     Indication: HYPERCHOLESTEROLAEMIA
     Dosage: ONCE TABLET ORAL
     Route: 048
     Dates: start: 20030104, end: 20040731

REACTIONS (26)
  - ABDOMINAL DISCOMFORT [None]
  - ASTHENIA [None]
  - BLOOD TESTOSTERONE DECREASED [None]
  - CHOLELITHIASIS [None]
  - COGNITIVE DISORDER [None]
  - COORDINATION ABNORMAL [None]
  - DECREASED ACTIVITY [None]
  - DISCOMFORT [None]
  - DRUG DOSE OMISSION [None]
  - ERYTHEMA [None]
  - FAECES DISCOLOURED [None]
  - FALL [None]
  - FEELING ABNORMAL [None]
  - FOOD INTERACTION [None]
  - GAIT DISTURBANCE [None]
  - GALLBLADDER DISORDER [None]
  - HEAD INJURY [None]
  - LOSS OF LIBIDO [None]
  - LYMPHADENOPATHY [None]
  - MALAISE [None]
  - METABOLIC DISORDER [None]
  - OVERDOSE [None]
  - PANCREATITIS [None]
  - PYREXIA [None]
  - SKIN LACERATION [None]
  - UPPER RESPIRATORY TRACT INFECTION [None]
